FAERS Safety Report 22623788 (Version 1)
Quarter: 2023Q2

REPORT INFORMATION
  Report Type: Spontaneous
  Country: US (occurrence: US)
  Receive Date: 20230621
  Receipt Date: 20230621
  Transmission Date: 20230722
  Serious: Yes (Hospitalization)
  Sender: FDA-Public Use
  Company Number: US-MYLANLABS-2023M1064029

PATIENT
  Age: 34 Year
  Sex: Female

DRUGS (2)
  1. MESALAMINE [Suspect]
     Active Substance: MESALAMINE
     Indication: Crohn^s disease
     Dosage: UNK (ENEMA)
     Route: 054
  2. BALSALAZIDE [Suspect]
     Active Substance: BALSALAZIDE
     Indication: Crohn^s disease
     Dosage: UNK
     Route: 048

REACTIONS (1)
  - Drug ineffective [Unknown]
